FAERS Safety Report 10341340 (Version 2)
Quarter: 2014Q3

REPORT INFORMATION
  Report Type: Spontaneous
  Country: FR (occurrence: FR)
  Receive Date: 20140725
  Receipt Date: 20140826
  Transmission Date: 20150326
  Serious: Yes (Other)
  Sender: FDA-Public Use
  Company Number: FR-MERCK-1407FRA010431

PATIENT
  Age: 5 Year
  Sex: Female
  Weight: 19 kg

DRUGS (1)
  1. AERIUS [Suspect]
     Active Substance: DESLORATADINE
     Dosage: 11.8 ML, UNIQUE INTAKE
     Route: 048
     Dates: start: 20140705, end: 20140705

REACTIONS (3)
  - Medication error [Recovered/Resolved]
  - Wrong technique in drug usage process [Recovered/Resolved]
  - Accidental overdose [Recovered/Resolved]

NARRATIVE: CASE EVENT DATE: 20140705
